FAERS Safety Report 7323851-2 (Version None)
Quarter: 2011Q1

REPORT INFORMATION
  Report Type: 
  Country: None (occurrence: None)
  Receive Date: 20110301
  Receipt Date: 20110223
  Transmission Date: 20110831
  Serious: Yes (Hospitalization)
  Sender: FDA-Public Use
  Company Number: A0915068A

PATIENT
  Age: 52 Year
  Sex: Female

DRUGS (7)
  1. UNSPECIFIED MEDICATION [Concomitant]
  2. LAMICTAL [Suspect]
     Indication: BIPOLAR DISORDER
     Dosage: 200MG PER DAY
     Route: 048
     Dates: start: 20070901, end: 20090625
  3. TRAZODONE HCL [Concomitant]
  4. LIBRIUM [Concomitant]
  5. CYMBALTA [Concomitant]
  6. REMERON [Concomitant]
  7. BUSPAR [Concomitant]

REACTIONS (5)
  - MANIA [None]
  - ALCOHOL ABUSE [None]
  - RASH [None]
  - ANXIETY [None]
  - MENTAL DISORDER [None]
